FAERS Safety Report 4977626-X (Version None)
Quarter: 2006Q2

REPORT INFORMATION
  Report Type: 
  Country: None (occurrence: None)
  Receive Date: 20060420
  Receipt Date: 20050524
  Transmission Date: 20061013
  Serious: No
  Sender: FDA-Public Use
  Company Number: US-GLAXOSMITHKLINE-A0559910A

PATIENT
  Age: 63 Year
  Sex: Male

DRUGS (4)
  1. LITHIUM CARBONATE [Suspect]
     Indication: DRUG USE FOR UNKNOWN INDICATION
     Dosage: 300MG TWICE PER DAY
     Route: 048
  2. PARNATE [Suspect]
     Indication: DEPRESSION
     Dosage: 55MG PER DAY
     Route: 048
  3. RISPERDAL [Concomitant]
  4. SYNTHROID [Concomitant]

REACTIONS (1)
  - SCLERODERMA [None]
